FAERS Safety Report 7603986 (Version 2)
Quarter: 2012Q4

REPORT INFORMATION
  Report Type: 
  Country: DE (occurrence: DE)
  Receive Date: 20100923
  Receipt Date: 20120829
  Transmission Date: 20130627
  Serious: Yes (Hospitalization)
  Sender: FDA-Public Use
  Company Number: DE-ABBOTT-10P-062-0672206-00

PATIENT
  Age: 24 Year
  Sex: Female

DRUGS (1)
  1. ENANTONE GYN [Suspect]
     Indication: ENDOMETRIOSIS
     Route: 050
     Dates: start: 20100401, end: 20100527

REACTIONS (3)
  - Ovarian cyst [Recovered/Resolved]
  - Dystonia [Recovered/Resolved]
  - Menopausal symptoms [Not Recovered/Not Resolved]
